FAERS Safety Report 6535802-9 (Version None)
Quarter: 2010Q1

REPORT INFORMATION
  Report Type: 
  Country: None (occurrence: None)
  Receive Date: 20100106
  Receipt Date: 20091216
  Transmission Date: 20100710
  Serious: Yes (Life-Threatening, Hospitalization)
  Sender: FDA-Public Use
  Company Number: 464796

PATIENT
  Age: 50 Year
  Sex: Female
  Weight: 66 kg

DRUGS (7)
  1. PACLITAXEL [Suspect]
     Indication: METASTATIC MALIGNANT MELANOMA
     Dates: start: 20091120, end: 20091120
  2. (OXYCODONE) [Concomitant]
  3. LEVOTHYROXINE SODIUM [Concomitant]
  4. PROMETHAZINE [Concomitant]
  5. RANITIDINE [Concomitant]
  6. DEXAMETHASONE [Concomitant]
  7. (TROPISETRON) [Concomitant]

REACTIONS (4)
  - DYSPNOEA [None]
  - FLUSHING [None]
  - OXYGEN SATURATION DECREASED [None]
  - THROAT TIGHTNESS [None]
